FAERS Safety Report 4647047-8 (Version None)
Quarter: 2005Q2

REPORT INFORMATION
  Report Type: 
  Country: None (occurrence: None)
  Receive Date: 20050331
  Receipt Date: 20041201
  Transmission Date: 20051028
  Serious: No
  Sender: FDA-Public Use
  Company Number: 04P-163-0270026-00

PATIENT
  Age: 83 Year
  Sex: Male

DRUGS (11)
  1. HUMIRA [Suspect]
     Indication: RHEUMATOID ARTHRITIS
     Dosage: 40 MG, 1 IN 2 WK, SUBCUTANEOUS
     Route: 058
     Dates: start: 20040101, end: 20041026
  2. CYANOCOBALAMIN [Concomitant]
  3. PYRIDOXINE HYDROCHLORIDE [Concomitant]
  4. MULTI-VITAMINS [Concomitant]
  5. FUROSEMIDE [Concomitant]
  6. ACETYL SALICYLIC ACID USP BAT [Concomitant]
  7. PREDNISONE TAB [Concomitant]
  8. LEXAPRO [Concomitant]
  9. POTASSIUM CHLORIDE [Concomitant]
  10. LEVOTHYROXINE SODIUM [Concomitant]
  11. CLOPIDOGREL BISULFATE [Concomitant]

REACTIONS (5)
  - CONDITION AGGRAVATED [None]
  - EPISTAXIS [None]
  - HEADACHE [None]
  - PRURITUS [None]
  - SINUSITIS [None]
